FAERS Safety Report 24806765 (Version 1)
Quarter: 2025Q1

REPORT INFORMATION
  Report Type: Spontaneous
  Country: CN (occurrence: CN)
  Receive Date: 20250104
  Receipt Date: 20250104
  Transmission Date: 20250409
  Serious: Yes (Hospitalization, Other)
  Sender: GLAXOSMITHKLINE
  Company Number: CN-GSK-CN2024APC164686

PATIENT

DRUGS (4)
  1. LAMICTAL [Suspect]
     Active Substance: LAMOTRIGINE
     Indication: Depression
     Dosage: 50 MG, QD
     Route: 048
  2. LAMICTAL [Suspect]
     Active Substance: LAMOTRIGINE
     Dosage: 400 MG, QD, 8 TABLETS
     Route: 048
     Dates: start: 20241215, end: 20241215
  3. LITHIUM CARBONATE [Suspect]
     Active Substance: LITHIUM CARBONATE
     Indication: Depression
     Dosage: 0.3 G, BID
     Route: 048
  4. LITHIUM CARBONATE [Suspect]
     Active Substance: LITHIUM CARBONATE
     Dosage: 3.6 G, QD, 12 TABLETS
     Route: 048
     Dates: start: 20241215, end: 20241215

REACTIONS (6)
  - Nausea [Recovering/Resolving]
  - Vomiting [Recovering/Resolving]
  - Acidosis hyperchloraemic [Recovering/Resolving]
  - Dizziness [Recovering/Resolving]
  - Overdose [Unknown]
  - Gastric lavage [Recovering/Resolving]

NARRATIVE: CASE EVENT DATE: 20241215
